FAERS Safety Report 9910686 (Version 1)
Quarter: 2014Q1

REPORT INFORMATION
  Report Type: Spontaneous
  Country: US (occurrence: US)
  Receive Date: 20140219
  Receipt Date: 20140219
  Transmission Date: 20141002
  Serious: No
  Sender: FDA-Public Use
  Company Number: US-ASTRAZENECA-2014SE07049

PATIENT
  Age: 48 Year
  Sex: Female

DRUGS (2)
  1. ATENOLOL [Suspect]
     Route: 065
  2. CRESTOR [Suspect]
     Route: 048
     Dates: start: 201312, end: 201312

REACTIONS (3)
  - Abdominal distension [Recovered/Resolved]
  - Dyspnoea [Recovered/Resolved]
  - Hypoaesthesia [Recovered/Resolved]
